FAERS Safety Report 5213489-5 (Version None)
Quarter: 2007Q1

REPORT INFORMATION
  Report Type: 
  Country: None (occurrence: None)
  Receive Date: 20070119
  Receipt Date: 20070109
  Transmission Date: 20070707
  Serious: Yes (Other)
  Sender: FDA-Public Use
  Company Number: JP-SANOFI-SYNTHELABO-A01200611276

PATIENT
  Age: 33 Year
  Sex: Male

DRUGS (19)
  1. GOODMIN [Concomitant]
     Indication: DRUG USE FOR UNKNOWN INDICATION
     Dosage: 1 UNIT
     Route: 048
     Dates: start: 20060606
  2. LUVOX [Suspect]
     Dosage: UNK
     Route: 048
     Dates: start: 20061225
  3. LUVOX [Suspect]
     Dosage: UNK
     Route: 048
     Dates: start: 20061225
  4. LUVOX [Suspect]
     Dosage: 50 MG
     Route: 048
     Dates: start: 20060513, end: 20060605
  5. LUVOX [Suspect]
     Dosage: 50 MG
     Route: 048
     Dates: start: 20060513, end: 20060605
  6. LUVOX [Suspect]
     Dosage: 100 MG
     Route: 048
     Dates: start: 20060606, end: 20061128
  7. LUVOX [Suspect]
     Dosage: 100 MG
     Route: 048
     Dates: start: 20060606, end: 20061128
  8. LUVOX [Suspect]
     Dosage: 150 MG
     Route: 048
     Dates: start: 20061129
  9. LUVOX [Suspect]
     Dosage: 150 MG
     Route: 048
     Dates: start: 20061129
  10. MEILAX [Concomitant]
     Indication: DRUG USE FOR UNKNOWN INDICATION
     Dosage: 1 MG
     Route: 048
     Dates: start: 20060606
  11. MYSLEE [Suspect]
     Dosage: UNK
     Route: 048
     Dates: start: 20061225
  12. MYSLEE [Suspect]
     Dosage: UNK
     Route: 048
     Dates: start: 20061225
  13. MYSLEE [Suspect]
     Dosage: 10 MG
     Route: 048
     Dates: start: 20061129
  14. MYSLEE [Suspect]
     Dosage: 10 MG
     Route: 048
     Dates: start: 20061129
  15. HALCION [Concomitant]
     Indication: DRUG USE FOR UNKNOWN INDICATION
     Dosage: 0.25 MG
     Route: 048
     Dates: start: 20060513, end: 20060605
  16. GASMOTIN [Concomitant]
     Dosage: UNK
     Route: 048
     Dates: start: 20061225
  17. GASMOTIN [Concomitant]
     Dosage: UNK
     Route: 048
     Dates: start: 20061225
  18. GASMOTIN [Concomitant]
     Dosage: 15 MG
     Route: 048
     Dates: start: 20061129
  19. GASMOTIN [Concomitant]
     Dosage: 15 MG
     Route: 048
     Dates: start: 20061129

REACTIONS (4)
  - CONVULSION [None]
  - DEPRESSED LEVEL OF CONSCIOUSNESS [None]
  - MULTIPLE DRUG OVERDOSE INTENTIONAL [None]
  - SUICIDE ATTEMPT [None]
